FAERS Safety Report 19453522 (Version 1)
Quarter: 2021Q2

REPORT INFORMATION
  Report Type: Spontaneous
  Country: JP (occurrence: JP)
  Receive Date: 20210623
  Receipt Date: 20210623
  Transmission Date: 20210717
  Serious: Yes (Other)
  Sender: FDA-Public Use
  Company Number: JP-PFIZER INC-2021700111

PATIENT

DRUGS (1)
  1. RHEUMATREX [Suspect]
     Active Substance: METHOTREXATE SODIUM
     Indication: RHEUMATOID ARTHRITIS
     Dosage: 2 TIMES, WEEKLY (WITH 12 HOURS INTERVAL )
     Route: 048

REACTIONS (4)
  - Abdominal pain upper [Unknown]
  - Pancytopenia [Unknown]
  - Myelosuppression [Unknown]
  - Abdominal pain [Unknown]
